FAERS Safety Report 22129419 (Version 2)
Quarter: 2023Q2

REPORT INFORMATION
  Report Type: Report from Study
  Country: US (occurrence: US)
  Receive Date: 20230323
  Receipt Date: 20230613
  Transmission Date: 20230722
  Serious: Yes (Other)
  Sender: FDA-Public Use
  Company Number: US-UCBSA-2022066382

PATIENT
  Age: 26 Year
  Sex: Female

DRUGS (3)
  1. CERTOLIZUMAB PEGOL [Suspect]
     Active Substance: CERTOLIZUMAB PEGOL
     Indication: Psoriatic arthropathy
     Dosage: 400 MILLIGRAM, EV 2 WEEKS(QOW)
     Route: 058
     Dates: start: 20221116, end: 2022
  2. CERTOLIZUMAB PEGOL [Suspect]
     Active Substance: CERTOLIZUMAB PEGOL
     Dosage: 400 MILLIGRAM, MONTHLY (QM)
     Route: 058
     Dates: start: 2022
  3. CERTOLIZUMAB PEGOL [Suspect]
     Active Substance: CERTOLIZUMAB PEGOL
     Dosage: 400 MILLIGRAM, EV 4 WEEKS
     Route: 058
     Dates: start: 20221116

REACTIONS (13)
  - Syncope [Recovered/Resolved]
  - Tinnitus [Recovered/Resolved]
  - Respiratory symptom [Recovered/Resolved]
  - Rhinorrhoea [Recovered/Resolved]
  - Agitation [Not Recovered/Not Resolved]
  - Administration site pallor [Not Recovered/Not Resolved]
  - Fatigue [Not Recovered/Not Resolved]
  - Asthenia [Not Recovered/Not Resolved]
  - Maternal exposure during pregnancy [Unknown]
  - Arthralgia [Not Recovered/Not Resolved]
  - Insurance issue [Unknown]
  - Inability to afford medication [Unknown]
  - Therapy cessation [Unknown]

NARRATIVE: CASE EVENT DATE: 20221116
